FAERS Safety Report 22115662 (Version 1)
Quarter: 2023Q1

REPORT INFORMATION
  Report Type: Report from Study
  Country: US (occurrence: US)
  Receive Date: 20230320
  Receipt Date: 20230320
  Transmission Date: 20230418
  Serious: Yes (Other)
  Sender: FDA-Public Use
  Company Number: US-GILEAD-2023-0620807

PATIENT
  Sex: Female

DRUGS (15)
  1. AZTREONAM LYSINE [Suspect]
     Active Substance: AZTREONAM LYSINE
     Indication: Cystic fibrosis
     Route: 055
  2. AZTREONAM LYSINE [Suspect]
     Active Substance: AZTREONAM LYSINE
     Indication: Pseudomonas infection
  3. PULMOZYME [Concomitant]
     Active Substance: DORNASE ALFA
  4. SODIUM CHLORIDE [Concomitant]
     Active Substance: SODIUM CHLORIDE
  5. TOBI PODHALER [Concomitant]
     Active Substance: TOBRAMYCIN
  6. ALBUTEROL SULFATE [Concomitant]
     Active Substance: ALBUTEROL SULFATE
  7. BUDESONIDE [Concomitant]
     Active Substance: BUDESONIDE
  8. HYDROCORTISONE [Concomitant]
     Active Substance: HYDROCORTISONE
  9. LEVEMIR [Concomitant]
     Active Substance: INSULIN DETEMIR
  10. MINERALS\VITAMINS [Concomitant]
     Active Substance: MINERALS\VITAMINS
  11. ELIDEL [Concomitant]
     Active Substance: PIMECROLIMUS
  12. BETHKIS [Concomitant]
     Active Substance: TOBRAMYCIN
  13. VITAMINS\ZINC [Concomitant]
     Active Substance: VITAMINS\ZINC
  14. FORTEO [Concomitant]
     Active Substance: TERIPARATIDE
  15. TRIKAFTA [Concomitant]
     Active Substance: ELEXACAFTOR\IVACAFTOR\TEZACAFTOR

REACTIONS (1)
  - Osteoporosis [Not Recovered/Not Resolved]
